FAERS Safety Report 16311381 (Version 1)
Quarter: 2019Q2

REPORT INFORMATION
  Report Type: Spontaneous
  Country: US (occurrence: US)
  Receive Date: 20190514
  Receipt Date: 20190514
  Transmission Date: 20190711
  Serious: No
  Sender: FDA-Public Use
  Company Number: US-GREER LABORATORIES, INC.-2066983

PATIENT
  Age: 62 Year
  Sex: Female
  Weight: 87.27 kg

DRUGS (1)
  1. ANIMAL ALLERGENS, DOG EPITHELIA, CANIS FAMILIARIS [Suspect]
     Active Substance: CANIS LUPUS FAMILIARIS SKIN
     Route: 023

REACTIONS (1)
  - Skin test negative [Recovered/Resolved]

NARRATIVE: CASE EVENT DATE: 20190416
